FAERS Safety Report 9046551 (Version 2)
Quarter: 2013Q1

REPORT INFORMATION
  Report Type: Spontaneous
  Country: FR (occurrence: FR)
  Receive Date: 20130204
  Receipt Date: 20130308
  Transmission Date: 20140127
  Serious: Yes (Other)
  Sender: FDA-Public Use
  Company Number: FR-ELI_LILLY_AND_COMPANY-FR201301009442

PATIENT
  Age: 61 Year
  Sex: Female
  Weight: 67 kg

DRUGS (8)
  1. FORSTEO [Suspect]
     Indication: OSTEOPOROSIS
     Dosage: 20 UG, QD
     Route: 058
     Dates: start: 20120401, end: 20130221
  2. FORSTEO [Suspect]
     Dosage: 20 UG, QD
     Route: 058
     Dates: start: 201003, end: 20130221
  3. CORTANCYL                               /FRA/ [Concomitant]
     Indication: SARCOIDOSIS
     Dosage: 4 MG, UNK
     Route: 048
  4. COAPROVEL [Concomitant]
     Indication: HYPERTENSION
     Dosage: UNK
     Route: 048
  5. LERCANIDIPINE [Concomitant]
     Indication: HYPERTENSION
     Dosage: 20 MG, UNK
  6. DOMPERIDONE [Concomitant]
     Dosage: UNK, PRN
     Route: 048
  7. LAROXYL [Concomitant]
     Indication: FIBROMYALGIA
     Dosage: UNK
     Route: 048
  8. DICODIN [Concomitant]
     Indication: FIBROMYALGIA
     Dosage: UNK

REACTIONS (7)
  - Hemiparesis [Recovered/Resolved]
  - Hemiparesis [Not Recovered/Not Resolved]
  - Fatigue [Not Recovered/Not Resolved]
  - Pain [Unknown]
  - Nausea [Unknown]
  - Asthenia [Unknown]
  - Headache [Unknown]
